FAERS Safety Report 9349255 (Version 1)
Quarter: 2013Q2

REPORT INFORMATION
  Report Type: Other
  Country: IN (occurrence: IN)
  Receive Date: 20130614
  Receipt Date: 20130614
  Transmission Date: 20140414
  Serious: Yes (Death, Other)
  Sender: FDA-Public Use
  Company Number: IN-BRISTOL-MYERS SQUIBB COMPANY-18979351

PATIENT
  Age: 10 Year
  Sex: Male

DRUGS (18)
  1. EFAVIRENZ [Suspect]
     Indication: ANTIRETROVIRAL THERAPY
     Dates: start: 2005
  2. DIDANOSINE [Suspect]
     Indication: ANTIRETROVIRAL THERAPY
  3. STAVUDINE [Suspect]
     Indication: ANTIRETROVIRAL THERAPY
     Dates: start: 2005
  4. ATAZANAVIR [Suspect]
     Indication: ANTIRETROVIRAL THERAPY
  5. ZALCITABINE [Suspect]
     Indication: ANTIRETROVIRAL THERAPY
  6. ZIDOVUDINE [Suspect]
     Indication: ANTIRETROVIRAL THERAPY
     Dates: start: 2004
  7. TENOFOVIR [Suspect]
     Indication: ANTIRETROVIRAL THERAPY
  8. LAMIVUDINE [Suspect]
     Indication: ANTIRETROVIRAL THERAPY
     Dates: start: 2005
  9. ABACAVIR [Suspect]
     Indication: ANTIRETROVIRAL THERAPY
  10. EMTRICITABINE [Suspect]
     Indication: ANTIRETROVIRAL THERAPY
  11. DELAVIRDINE [Suspect]
     Indication: ANTIRETROVIRAL THERAPY
  12. NEVIRAPINE [Suspect]
     Indication: ANTIRETROVIRAL THERAPY
     Dates: start: 2004
  13. NELFINAVIR [Suspect]
     Indication: ANTIRETROVIRAL THERAPY
  14. AMPRENAVIR [Suspect]
     Indication: ANTIRETROVIRAL THERAPY
  15. INDINAVIR [Suspect]
     Indication: ANTIRETROVIRAL THERAPY
  16. SAQUINAVIR [Suspect]
     Indication: ANTIRETROVIRAL THERAPY
  17. LOPINAVIR [Suspect]
     Indication: ANTIRETROVIRAL THERAPY
  18. RITONAVIR [Suspect]
     Indication: ANTIRETROVIRAL THERAPY

REACTIONS (2)
  - Drug ineffective [Fatal]
  - Drug resistance [Unknown]
